FAERS Safety Report 8332705-4 (Version None)
Quarter: 2012Q2

REPORT INFORMATION
  Report Type: 
  Country: None (occurrence: None)
  Receive Date: 20120503
  Receipt Date: 20120321
  Transmission Date: 20120825
  Serious: No
  Sender: FDA-Public Use
  Company Number: US-MYLANLABS-2012S1004991

PATIENT
  Age: 48 Year
  Sex: Male

DRUGS (10)
  1. MORPHINE SULFATE [Suspect]
     Indication: BACK PAIN
     Route: 048
     Dates: start: 20120305, end: 20120310
  2. LITHIUM CARBONATE [Concomitant]
  3. BUSPIRONE HCL [Concomitant]
  4. GABAPENTIN [Concomitant]
  5. LYRICA [Concomitant]
  6. NAPROXEN [Concomitant]
  7. CYMBALTA [Concomitant]
  8. OMEPRAZOLE [Concomitant]
  9. PROBIOTICS [Concomitant]
  10. ENALAPRIL MALEATE [Concomitant]

REACTIONS (4)
  - BACK PAIN [None]
  - HALLUCINATIONS, MIXED [None]
  - DIZZINESS [None]
  - DRUG INEFFECTIVE [None]
